FAERS Safety Report 5797248-0 (Version None)
Quarter: 2008Q3

REPORT INFORMATION
  Report Type: 
  Country: None (occurrence: None)
  Receive Date: 20080701
  Receipt Date: 20080625
  Transmission Date: 20090109
  Serious: Yes (Hospitalization, Congenital Anomaly)
  Sender: FDA-Public Use
  Company Number: BE-MERCK-0805BEL00013

PATIENT

DRUGS (2)
  1. SINGULAIR [Suspect]
     Indication: ASTHMA
     Route: 064
     Dates: start: 20051103
  2. BUDESONIDE AND FORMOTEROL FUMARATE [Concomitant]
     Indication: ASTHMA
     Route: 064

REACTIONS (7)
  - ATRIAL SEPTAL DEFECT [None]
  - CEREBELLAR HAEMANGIOMA [None]
  - CONGENITAL CARDIOVASCULAR ANOMALY [None]
  - CONGENITAL MUSCULOSKELETAL ANOMALY [None]
  - CONGENITAL SCOLIOSIS [None]
  - HAEMANGIOMA OF SKIN [None]
  - MULTIPLE CONGENITAL ABNORMALITIES [None]
